FAERS Safety Report 6287958-3 (Version None)
Quarter: 2009Q3

REPORT INFORMATION
  Report Type: 
  Country: None (occurrence: None)
  Receive Date: 20090729
  Receipt Date: 20090721
  Transmission Date: 20100115
  Serious: Yes (Other)
  Sender: FDA-Public Use
  Company Number: US-BAYER-200927446NA

PATIENT
  Age: 47 Year
  Sex: Male

DRUGS (2)
  1. AVELOX [Suspect]
     Indication: SINUSITIS
  2. PREDNISONE [Concomitant]
     Indication: ASTHMA

REACTIONS (1)
  - TENDON RUPTURE [None]
